FAERS Safety Report 5996669-0 (Version None)
Quarter: 2008Q4

REPORT INFORMATION
  Report Type: 
  Country: None (occurrence: None)
  Receive Date: 20081212
  Receipt Date: 20081021
  Transmission Date: 20090506
  Serious: No
  Sender: FDA-Public Use
  Company Number: US-ABBOTT-08P-163-0483151-00

PATIENT
  Sex: Female
  Weight: 59.02 kg

DRUGS (3)
  1. HUMIRA [Suspect]
     Indication: CROHN'S DISEASE
     Route: 058
     Dates: start: 20080601
  2. ALBUTEROL SULFATE [Concomitant]
     Indication: MIGRAINE
  3. SUMATRIPTAN [Concomitant]
     Indication: ASTHMA

REACTIONS (1)
  - BREAST DISCHARGE [None]
